FAERS Safety Report 5875119-9 (Version None)
Quarter: 2008Q3

REPORT INFORMATION
  Report Type: 
  Country: None (occurrence: None)
  Receive Date: 20080909
  Receipt Date: 20080905
  Transmission Date: 20090109
  Serious: Yes (Death)
  Sender: FDA-Public Use
  Company Number: B0507430B

PATIENT
  Age: 40 Year
  Sex: Female

DRUGS (3)
  1. LAPATINIB [Suspect]
     Dosage: 1250MG PER DAY
     Route: 048
     Dates: end: 20080401
  2. CAPECITABINE [Suspect]
     Dosage: 2000MGM2 PER DAY
     Route: 048
  3. CHEMOTHERAPY [Concomitant]
     Dates: start: 20080401

REACTIONS (2)
  - DEATH [None]
  - DRUG INEFFECTIVE [None]
